FAERS Safety Report 9808166 (Version 2)
Quarter: 2014Q1

REPORT INFORMATION
  Report Type: Spontaneous
  Country: US (occurrence: US)
  Receive Date: 20140110
  Receipt Date: 20140110
  Transmission Date: 20141002
  Serious: Yes (Death, Hospitalization)
  Sender: FDA-Public Use
  Company Number: US-JNJFOC-20140103857

PATIENT
  Age: 41 Year
  Sex: Male

DRUGS (5)
  1. HYDROMORPHONE [Suspect]
     Indication: SUICIDE ATTEMPT
     Route: 048
  2. ACETAMINOPHEN/OXYCODONE [Suspect]
     Indication: SUICIDE ATTEMPT
     Route: 048
  3. CARISOPRODOL [Suspect]
     Indication: SUICIDE ATTEMPT
     Route: 051
  4. BENZODIAZEPINE NOS [Suspect]
     Indication: SUICIDE ATTEMPT
     Route: 051
  5. ALPRAZOLAM [Suspect]
     Indication: SUICIDE ATTEMPT
     Route: 051

REACTIONS (1)
  - Toxicity to various agents [Fatal]
